FAERS Safety Report 9335172 (Version 6)
Quarter: 2013Q4

REPORT INFORMATION
  Report Type: Report from Study
  Country: GE (occurrence: GE)
  Receive Date: 20130606
  Receipt Date: 20131121
  Transmission Date: 20140711
  Serious: Yes (Life-Threatening, Hospitalization, Disabling)
  Sender: FDA-Public Use
  Company Number: GE-GLAXOSMITHKLINE-B0884730A

PATIENT
  Age: 58 Year
  Sex: Male
  Weight: 78 kg

DRUGS (8)
  1. FLUTICASONE FUROATE + VILANTEROL TRIFENATATE [Suspect]
     Indication: CHRONIC OBSTRUCTIVE PULMONARY DISEASE
     Dates: start: 20130227, end: 20130406
  2. FLUTICASONE FUROATE + VILANTEROL TRIFENATATE [Suspect]
     Dates: start: 20130523
  3. LASIX [Concomitant]
     Indication: CARDIAC FAILURE CONGESTIVE
     Route: 048
     Dates: start: 20121220
  4. HYDROCHLOROTHIAZIDE + LOSARTAN [Concomitant]
     Indication: HYPERTENSION
     Route: 048
     Dates: start: 20130227
  5. CARDIOMAGNYL [Concomitant]
     Indication: CORONARY ARTERY DISEASE
     Route: 048
     Dates: start: 20121220
  6. PREDUCTAL [Concomitant]
     Indication: CORONARY ARTERY DISEASE
     Route: 048
     Dates: start: 20130227
  7. VEROSPIRON [Concomitant]
     Indication: CARDIAC FAILURE
     Route: 048
     Dates: start: 20130329
  8. CARVEDILOL [Concomitant]
     Indication: CARDIAC FAILURE
     Route: 048
     Dates: start: 20130329

REACTIONS (1)
  - Cardiac failure [Recovered/Resolved]
